FAERS Safety Report 10303197 (Version 2)
Quarter: 2014Q3

REPORT INFORMATION
  Report Type: Spontaneous
  Country: US (occurrence: None)
  Receive Date: 20140710
  Receipt Date: 20140728
  Transmission Date: 20150326
  Serious: Yes (Other)
  Sender: FDA-Public Use
  Company Number: 2014-US-007875

PATIENT
  Age: 16 Year
  Sex: Male

DRUGS (2)
  1. ANALGESIC [Suspect]
     Active Substance: UNSPECIFIED INGREDIENT
     Indication: PAIN
     Dosage: UNKNOWN DOSE
  2. XYREM [Suspect]
     Active Substance: SODIUM OXYBATE
     Indication: NARCOLEPSY
     Route: 048
     Dates: start: 201310, end: 2013

REACTIONS (5)
  - Dermatitis contact [None]
  - Drug interaction [None]
  - Off label use [None]
  - Surgery [None]
  - Respiratory rate decreased [None]
